FAERS Safety Report 7838024-4 (Version None)
Quarter: 2011Q4

REPORT INFORMATION
  Report Type: 
  Country: None (occurrence: None)
  Receive Date: 20111024
  Receipt Date: 20110405
  Transmission Date: 20120403
  Serious: No
  Sender: FDA-Public Use
  Company Number: US-ABBOTT-11P-163-0717005-00

PATIENT
  Age: 26 Year
  Sex: Female
  Weight: 86.714 kg

DRUGS (1)
  1. LUPRON DEPOT [Suspect]
     Indication: ENDOMETRIOSIS
     Dates: start: 20081001, end: 20090301

REACTIONS (2)
  - INSOMNIA [None]
  - PAIN [None]
